FAERS Safety Report 24875006 (Version 1)
Quarter: 2025Q1

REPORT INFORMATION
  Report Type: Other
  Country: US (occurrence: US)
  Receive Date: 20250122
  Receipt Date: 20250122
  Transmission Date: 20250409
  Serious: Yes (Hospitalization)
  Sender: AIRGAS
  Company Number: US-ALSI-2025000013

PATIENT
  Age: 76 Year
  Sex: Female
  Weight: 70 kg

DRUGS (1)
  1. CARBON DIOXIDE [Suspect]
     Active Substance: CARBON DIOXIDE
     Indication: Laparoscopic surgery

REACTIONS (1)
  - Air embolism [Recovered/Resolved]
